FAERS Safety Report 17111710 (Version 1)
Quarter: 2019Q4

REPORT INFORMATION
  Report Type: Spontaneous
  Country: FR (occurrence: FR)
  Receive Date: 20191204
  Receipt Date: 20191204
  Transmission Date: 20200122
  Serious: Yes (Hospitalization)
  Sender: FDA-Public Use
  Company Number: FR-ASTRAZENECA-2019SF69340

PATIENT
  Age: 51 Year
  Sex: Male

DRUGS (4)
  1. INEXIUM [Suspect]
     Active Substance: ESOMEPRAZOLE
     Indication: PRODUCT USED FOR UNKNOWN INDICATION
     Route: 048
  2. ATENOLOL. [Concomitant]
     Active Substance: ATENOLOL
     Dosage: NON RENSEIGNEE
     Route: 048
  3. FLECAINE [Concomitant]
     Active Substance: FLECAINIDE
     Dosage: NON RENSEIGNEE
     Route: 048
  4. LOXEN [Concomitant]
     Dosage: NON RENSEIGNEE
     Route: 048

REACTIONS (4)
  - Rectal polyp [Recovered/Resolved with Sequelae]
  - Gastrointestinal polyp [Recovered/Resolved with Sequelae]
  - Adenoma benign [Not Recovered/Not Resolved]
  - Duodenal polyp [Recovered/Resolved with Sequelae]

NARRATIVE: CASE EVENT DATE: 2019
